FAERS Safety Report 4619205-X (Version None)
Quarter: 2005Q2

REPORT INFORMATION
  Report Type: 
  Country: None (occurrence: None)
  Receive Date: 20050321
  Receipt Date: 20040824
  Transmission Date: 20051028
  Serious: Yes (Other)
  Sender: FDA-Public Use
  Company Number: 2004-08-1580

PATIENT
  Age: 47 Year
  Sex: Male
  Weight: 113.8529 kg

DRUGS (6)
  1. PEG-INTRON [Suspect]
     Indication: HEPATITIS C
     Dosage: 150 MCG QWK SUBCUTANENOUS
     Route: 058
     Dates: start: 20040227, end: 20040823
  2. REBETOL [Suspect]
     Indication: HEPATITIS C
     Dosage: 1400 MG QD ORAL
     Route: 048
     Dates: start: 20040227, end: 20040823
  3. NEXIUM [Concomitant]
  4. ALLOPURINOL [Concomitant]
  5. BUSPAR [Concomitant]
  6. LEXAPRO [Concomitant]

REACTIONS (1)
  - HALLUCINATION, VISUAL [None]
